FAERS Safety Report 24963275 (Version 1)
Quarter: 2025Q1

REPORT INFORMATION
  Report Type: Spontaneous
  Country: DE (occurrence: DE)
  Receive Date: 20250213
  Receipt Date: 20250213
  Transmission Date: 20250409
  Serious: Yes (Hospitalization, Other)
  Sender: CELLTRION
  Company Number: None

PATIENT

DRUGS (2)
  1. VEGZELMA [Suspect]
     Active Substance: BEVACIZUMAB-ADCD
     Indication: Gastrointestinal carcinoma
     Route: 058
     Dates: start: 20171201, end: 20240806
  2. VEGZELMA [Suspect]
     Active Substance: BEVACIZUMAB-ADCD
     Indication: Breast cancer

REACTIONS (6)
  - Acute abdomen [Unknown]
  - Hypokalaemia [Unknown]
  - Hyponatraemia [Unknown]
  - Nausea [Unknown]
  - Vomiting [Unknown]
  - Product use issue [Unknown]

NARRATIVE: CASE EVENT DATE: 20171201
